FAERS Safety Report 7690551-9 (Version None)
Quarter: 2011Q3

REPORT INFORMATION
  Report Type: 
  Country: None (occurrence: None)
  Receive Date: 20110812
  Receipt Date: 20110803
  Transmission Date: 20111222
  Serious: Yes (Hospitalization)
  Sender: FDA-Public Use
  Company Number: 2011AP001667

PATIENT
  Age: 82 Year
  Sex: Female

DRUGS (17)
  1. CLOPIDOGREL BISULFATE [Concomitant]
  2. RAMIPRIL [Concomitant]
  3. ALENDRONATE SODIUM [Suspect]
     Indication: PRODUCT USED FOR UNKNOWN INDICATION
     Dates: start: 20110725
  4. BENDROFLUMETHIAZIDE (BENDROFLUMETHIAZIDE) [Concomitant]
  5. CALCIUM CARBONATE [Concomitant]
  6. GLICLAZIDE (GLICLAZIDE) [Concomitant]
  7. NICORANDIL (NICORANDIL [Concomitant]
  8. FLUVASTATIN [Concomitant]
  9. NITROGLYCERIN [Concomitant]
  10. POVIDONE IODINE [Concomitant]
  11. OMEPRAZOLE [Concomitant]
  12. COLECALCIFEROL (COLECALCIFEROL) [Concomitant]
  13. PREDNISOLONE [Concomitant]
  14. PROCHLORPERAZINE MALEATE [Concomitant]
  15. FLOXACILLIN SODIUM [Concomitant]
  16. SUCRALFATE [Concomitant]
  17. SALBUTAMOL SULFATE (SALBUTAMOL SULFATE) [Concomitant]

REACTIONS (1)
  - GASTRIC ULCER HAEMORRHAGE [None]
